FAERS Safety Report 17005368 (Version 2)
Quarter: 2019Q4

REPORT INFORMATION
  Report Type: Spontaneous
  Country: US (occurrence: US)
  Receive Date: 20191107
  Receipt Date: 20191113
  Transmission Date: 20200122
  Serious: Yes (Hospitalization, Other)
  Sender: FDA-Public Use
  Company Number: US-ASTRAZENECA-2018SF26387

PATIENT
  Age: 19799 Day
  Sex: Female

DRUGS (18)
  1. CYCLOBENZAPRINE. [Concomitant]
     Active Substance: CYCLOBENZAPRINE
  2. CHANTIX [Concomitant]
     Active Substance: VARENICLINE TARTRATE
  3. ALPRAZOLAM. [Concomitant]
     Active Substance: ALPRAZOLAM
  4. NEXIUM [Suspect]
     Active Substance: ESOMEPRAZOLE MAGNESIUM
     Route: 048
     Dates: start: 20070329
  5. PAROXETINE. [Concomitant]
     Active Substance: PAROXETINE
  6. PRILOSEC [Suspect]
     Active Substance: OMEPRAZOLE MAGNESIUM
     Route: 048
     Dates: start: 2007, end: 2018
  7. PROTONIX [Suspect]
     Active Substance: PANTOPRAZOLE SODIUM
     Route: 065
     Dates: start: 2007, end: 2018
  8. ALBUTEROL. [Concomitant]
     Active Substance: ALBUTEROL
  9. XANAX [Concomitant]
     Active Substance: ALPRAZOLAM
  10. PRILOSEC [Suspect]
     Active Substance: OMEPRAZOLE MAGNESIUM
     Route: 048
     Dates: start: 20080919
  11. NORVASC [Concomitant]
     Active Substance: AMLODIPINE BESYLATE
  12. GABAPENTIN. [Concomitant]
     Active Substance: GABAPENTIN
  13. PROVENTIL [Concomitant]
     Active Substance: ALBUTEROL
  14. ZOLOFT [Concomitant]
     Active Substance: SERTRALINE HYDROCHLORIDE
  15. NEXIUM [Suspect]
     Active Substance: ESOMEPRAZOLE MAGNESIUM
     Route: 048
     Dates: start: 2007, end: 2018
  16. HYDROCORTISONE. [Concomitant]
     Active Substance: HYDROCORTISONE
  17. LISINOPRIL. [Concomitant]
     Active Substance: LISINOPRIL
  18. EFFEXOR [Concomitant]
     Active Substance: VENLAFAXINE HYDROCHLORIDE

REACTIONS (3)
  - Acute kidney injury [Unknown]
  - Renal failure [Unknown]
  - Nephrogenic anaemia [Unknown]

NARRATIVE: CASE EVENT DATE: 20140924
